FAERS Safety Report 9578245 (Version 1)
Quarter: 2013Q4

REPORT INFORMATION
  Report Type: Spontaneous
  Country: US (occurrence: US)
  Receive Date: 20131001
  Receipt Date: 20131001
  Transmission Date: 20140711
  Serious: No
  Sender: FDA-Public Use
  Company Number: US-AMGEN-USASP2013012769

PATIENT
  Age: 32 Year
  Sex: Female
  Weight: 70.3 kg

DRUGS (9)
  1. ENBREL [Suspect]
     Indication: ANKYLOSING SPONDYLITIS
     Dosage: 50 MG, QWK
     Route: 058
  2. VITAMIN B12 INJEEL [Concomitant]
     Dosage: 1000 MUG, UNK (INJECTION)
     Route: 030
  3. VITAMIN B12 INJEEL [Concomitant]
     Dosage: 100 MUG, UNK (LOZENGES)
     Route: 048
  4. PREDNISONE [Concomitant]
     Dosage: 10 MG, UNK
     Route: 048
  5. NEXIUM                             /01479302/ [Concomitant]
     Dosage: 20 MG, UNK
     Route: 048
  6. NEXIUM                             /01479302/ [Concomitant]
     Dosage: 40 MG, UNK
     Route: 048
  7. SYMBICORT [Concomitant]
     Dosage: 160-4.5 IN
  8. NORTREL                            /00318901/ [Concomitant]
     Dosage: 1/35
     Route: 048
  9. CELEBREX [Concomitant]
     Dosage: 100 MG, UNK
     Route: 048

REACTIONS (1)
  - Injection site reaction [Unknown]
